FAERS Safety Report 6958300-7 (Version None)
Quarter: 2010Q3

REPORT INFORMATION
  Report Type: 
  Country: None (occurrence: None)
  Receive Date: 20100831
  Receipt Date: 20100825
  Transmission Date: 20110219
  Serious: Yes (Life-Threatening, Hospitalization, Other)
  Sender: FDA-Public Use
  Company Number: A0877689A

PATIENT
  Age: 46 Year
  Sex: Female

DRUGS (4)
  1. LEXIVA [Suspect]
     Indication: HIV INFECTION
     Dosage: 2100MG TWICE PER DAY
     Route: 048
     Dates: start: 20100803, end: 20100812
  2. SUSTIVA [Concomitant]
  3. LOVAZA [Concomitant]
  4. GLUCOSAMINE [Concomitant]

REACTIONS (8)
  - BLOOD BICARBONATE DECREASED [None]
  - BONE MARROW FAILURE [None]
  - HAEMOGLOBIN DECREASED [None]
  - HYPERCALCAEMIA [None]
  - HYPOKALAEMIA [None]
  - OVERDOSE [None]
  - PLATELET COUNT DECREASED [None]
  - WHITE BLOOD CELL COUNT DECREASED [None]
